FAERS Safety Report 14434878 (Version 2)
Quarter: 2018Q2

REPORT INFORMATION
  Report Type: Report from Study
  Country: US (occurrence: US)
  Receive Date: 20180125
  Receipt Date: 20180620
  Transmission Date: 20180711
  Serious: Yes (Other)
  Sender: FDA-Public Use
  Company Number: PHEH2018US002783

PATIENT
  Sex: Male

DRUGS (1)
  1. ENTRESTO [Suspect]
     Active Substance: SACUBITRIL\VALSARTAN
     Indication: CARDIAC FAILURE CONGESTIVE
     Route: 065

REACTIONS (7)
  - Therapeutic response unexpected [Unknown]
  - Dyspnoea [Unknown]
  - Weight increased [Unknown]
  - Feeling abnormal [Unknown]
  - Fluid retention [Unknown]
  - Product use in unapproved indication [Unknown]
  - Gait disturbance [Unknown]
